FAERS Safety Report 22265524 (Version 1)
Quarter: 2023Q2

REPORT INFORMATION
  Report Type: Spontaneous
  Country: US (occurrence: US)
  Receive Date: 20230428
  Receipt Date: 20230428
  Transmission Date: 20230722
  Serious: Yes (Hospitalization, Other)
  Sender: FDA-Public Use
  Company Number: US-PFIZER INC-PV202300074835

PATIENT

DRUGS (1)
  1. TIKOSYN [Suspect]
     Active Substance: DOFETILIDE
     Indication: Atrial fibrillation
     Dosage: 500 UG, 2X/DAY

REACTIONS (7)
  - Cardiac ablation [Unknown]
  - Gastric banding [Unknown]
  - Exostosis [Unknown]
  - Tendon disorder [Unknown]
  - Spinal operation [Unknown]
  - Tenoplasty [Unknown]
  - Catheterisation cardiac [Unknown]

NARRATIVE: CASE EVENT DATE: 20080101
